FAERS Safety Report 23573702 (Version 1)
Quarter: 2024Q1

REPORT INFORMATION
  Report Type: Report from Study
  Country: US (occurrence: US)
  Receive Date: 20240228
  Receipt Date: 20240228
  Transmission Date: 20240410
  Serious: Yes (Hospitalization)
  Sender: FDA-Public Use
  Company Number: US-ABBVIE-5653803

PATIENT
  Sex: Female

DRUGS (1)
  1. VENCLEXTA [Suspect]
     Active Substance: VENETOCLAX
     Indication: Acute myeloid leukaemia
     Dosage: 30 MILLIGRAMS ON DAYS 1-7 IN A 28DAY CYCLE
     Route: 048
     Dates: start: 20231218

REACTIONS (2)
  - Pericardial effusion [Unknown]
  - Upper respiratory tract infection [Unknown]
